FAERS Safety Report 13460680 (Version 3)
Quarter: 2017Q2

REPORT INFORMATION
  Report Type: Spontaneous
  Country: JP (occurrence: JP)
  Receive Date: 20170420
  Receipt Date: 20170608
  Transmission Date: 20170830
  Serious: Yes (Hospitalization, Other)
  Sender: FDA-Public Use
  Company Number: JP-ASTELLAS-2017JP006463AA

PATIENT
  Age: 38 Year
  Sex: Female
  Weight: 57 kg

DRUGS (23)
  1. REBAMIPIDE [Concomitant]
     Active Substance: REBAMIPIDE
     Indication: GASTRITIS PROPHYLAXIS
     Route: 048
  2. SOLACET F [Concomitant]
     Indication: ANALGESIC THERAPY
     Route: 041
     Dates: end: 20170411
  3. ATONIN-O [Concomitant]
     Active Substance: OXYTOCIN
     Indication: THREATENED LABOUR
     Route: 041
     Dates: start: 20170413, end: 20170413
  4. RINDERON                           /00008501/ [Concomitant]
     Active Substance: BETAMETHASONE
     Indication: SYSTEMIC LUPUS ERYTHEMATOSUS
  5. TOSPARYL [Concomitant]
     Indication: ANALGESIC THERAPY
     Route: 041
     Dates: start: 20170413, end: 20170413
  6. PREDONINE [Concomitant]
     Active Substance: PREDNISOLONE
     Indication: SYSTEMIC LUPUS ERYTHEMATOSUS
  7. ZANTAC [Concomitant]
     Active Substance: RANITIDINE HYDROCHLORIDE
     Indication: GASTRITIS PROPHYLAXIS
     Route: 048
  8. BIO-THREE [Concomitant]
     Active Substance: HERBALS
     Indication: PROPHYLAXIS
     Dosage: 1 TABLET, THRICE DAILY
     Route: 048
  9. PREDONINE [Concomitant]
     Active Substance: PREDNISOLONE
     Indication: MIXED CONNECTIVE TISSUE DISEASE
     Route: 041
     Dates: start: 20170413, end: 20170413
  10. ACETAMINOPHEN. [Concomitant]
     Active Substance: ACETAMINOPHEN
     Indication: ANALGESIC THERAPY
     Route: 041
     Dates: start: 20170413, end: 20170413
  11. PROGRAF [Suspect]
     Active Substance: TACROLIMUS\TACROLIMUS ANHYDROUS
     Indication: MIXED CONNECTIVE TISSUE DISEASE
  12. PROGRAF [Suspect]
     Active Substance: TACROLIMUS\TACROLIMUS ANHYDROUS
     Indication: SYSTEMIC LUPUS ERYTHEMATOSUS
  13. VICCILLIN                          /00000501/ [Concomitant]
     Indication: INFECTION PROPHYLAXIS
     Route: 041
     Dates: start: 20170411, end: 20170411
  14. FLUMARIN                           /00780601/ [Concomitant]
     Indication: INFECTION PROPHYLAXIS
     Route: 041
     Dates: start: 20170413, end: 20170415
  15. RINDERON                           /00008501/ [Concomitant]
     Active Substance: BETAMETHASONE
     Indication: MIXED CONNECTIVE TISSUE DISEASE
     Route: 030
     Dates: start: 20170411, end: 20170412
  16. PREDONINE [Concomitant]
     Active Substance: PREDNISOLONE
     Indication: SYSTEMIC LUPUS ERYTHEMATOSUS
  17. ATARAX [Concomitant]
     Active Substance: HYDROXYZINE HYDROCHLORIDE
     Indication: ANALGESIC THERAPY
     Route: 041
     Dates: start: 20170413, end: 20170413
  18. MAGSENT [Concomitant]
     Active Substance: DEXTROSE\MAGNESIUM SULFATE HEPTAHYDRATE
     Indication: THREATENED LABOUR
     Dosage: 24 G/DAY, CONTINUOUS
     Route: 041
     Dates: start: 20170328
  19. ACETAMINOPHEN. [Concomitant]
     Active Substance: ACETAMINOPHEN
     Route: 041
     Dates: start: 20170414, end: 20170414
  20. TOSPARYL [Concomitant]
     Route: 041
     Dates: start: 20170414, end: 20170414
  21. VICCILLIN                          /00000501/ [Concomitant]
     Route: 041
     Dates: start: 20170412, end: 20170412
  22. PROGRAF [Suspect]
     Active Substance: TACROLIMUS\TACROLIMUS ANHYDROUS
     Indication: LUPUS NEPHRITIS
     Route: 048
  23. PREDONINE [Concomitant]
     Active Substance: PREDNISOLONE
     Indication: MIXED CONNECTIVE TISSUE DISEASE
     Route: 048

REACTIONS (4)
  - Intentional underdose [Unknown]
  - Premature delivery [Unknown]
  - Maternal exposure during pregnancy [Unknown]
  - Threatened labour [Recovered/Resolved]

NARRATIVE: CASE EVENT DATE: 20170328
